FAERS Safety Report 5630942-0 (Version None)
Quarter: 2008Q1

REPORT INFORMATION
  Report Type: 
  Country: None (occurrence: None)
  Receive Date: 20080219
  Receipt Date: 20080213
  Transmission Date: 20080703
  Serious: Yes (Hospitalization)
  Sender: FDA-Public Use
  Company Number: FR-AVENTIS-200810756EU

PATIENT
  Age: 48 Year
  Sex: Female
  Weight: 39.6 kg

DRUGS (7)
  1. NATRIX [Suspect]
     Indication: HYPERTENSION
     Route: 048
     Dates: start: 20071227, end: 20080110
  2. BERIZYM                            /00517401/ [Concomitant]
     Dates: start: 20070627
  3. BIOFERMIN [Concomitant]
     Dates: start: 20050622
  4. LOPEMIN [Concomitant]
     Dates: start: 20050309
  5. GASTER [Concomitant]
     Dates: start: 20070627
  6. FOIPAN [Concomitant]
     Dates: start: 20070508
  7. CALCIUM POLYSTYRENE SULFONATE [Concomitant]
     Dates: start: 20071128

REACTIONS (1)
  - ECZEMA [None]
